FAERS Safety Report 10685391 (Version 2)
Quarter: 2015Q1

REPORT INFORMATION
  Report Type: Spontaneous
  Country: US (occurrence: None)
  Receive Date: 20141229
  Receipt Date: 20150218
  Transmission Date: 20150720
  Serious: Yes (Other)
  Sender: FDA-Public Use
  Company Number: ADR-2014-02442

PATIENT
  Age: 22 Year
  Sex: Male

DRUGS (1)
  1. LIORESAL [Suspect]
     Active Substance: BACLOFEN
     Indication: MUSCLE SPASTICITY

REACTIONS (7)
  - Ventricular tachycardia [None]
  - Muscle spasticity [None]
  - Supraventricular tachycardia [None]
  - Drug withdrawal syndrome [None]
  - Seizure [None]
  - Autonomic dysreflexia [None]
  - Pain [None]
